FAERS Safety Report 10863198 (Version 2)
Quarter: 2015Q2

REPORT INFORMATION
  Report Type: Report from Study
  Country: US (occurrence: US)
  Receive Date: 20150223
  Receipt Date: 20150410
  Transmission Date: 20150821
  Serious: Yes (Other)
  Sender: FDA-Public Use
  Company Number: US-BAXTER-2015BAX009246

PATIENT
  Age: 43 Year
  Sex: Female

DRUGS (3)
  1. HYQVIA [Suspect]
     Active Substance: HUMAN IMMUNOGLOBULIN G\HYALURONIDASE RECOMBINANT HUMAN
     Indication: IMMUNODEFICIENCY
     Dosage: 1ST INFUSION
     Route: 058
     Dates: start: 20150210
  2. GAMMAGARD LIQUID [Suspect]
     Active Substance: HUMAN IMMUNOGLOBULIN G
     Indication: IMMUNODEFICIENCY
     Route: 042
  3. HYQVIA [Suspect]
     Active Substance: HUMAN IMMUNOGLOBULIN G\HYALURONIDASE RECOMBINANT HUMAN
     Dosage: 2ND INFUSION
     Route: 058
     Dates: start: 2015

REACTIONS (10)
  - No therapeutic response [Not Recovered/Not Resolved]
  - Infusion site pain [Recovered/Resolved]
  - Nausea [Unknown]
  - Vomiting [Unknown]
  - Infusion site swelling [Recovered/Resolved]
  - Infusion related reaction [Recovered/Resolved]
  - Discomfort [Not Recovered/Not Resolved]
  - Fatigue [Unknown]
  - Feeling abnormal [Not Recovered/Not Resolved]
  - Hypersomnia [Unknown]

NARRATIVE: CASE EVENT DATE: 2015
